FAERS Safety Report 6283387-7 (Version None)
Quarter: 2009Q3

REPORT INFORMATION
  Report Type: 
  Country: None (occurrence: None)
  Receive Date: 20090724
  Receipt Date: 20090121
  Transmission Date: 20100115
  Serious: No
  Sender: FDA-Public Use
  Company Number: US-AMGEN-KDL329771

PATIENT
  Sex: Female
  Weight: 57.7 kg

DRUGS (7)
  1. PROCRIT [Suspect]
     Indication: RENAL FAILURE CHRONIC
     Route: 058
     Dates: start: 20070101
  2. FUROSEMIDE [Concomitant]
     Route: 048
     Dates: start: 20070101
  3. LISINOPRIL [Concomitant]
     Route: 048
     Dates: start: 20070101
  4. LIPITOR [Concomitant]
     Route: 048
     Dates: start: 20070101
  5. GLUCOSIDE [Concomitant]
     Route: 048
     Dates: start: 20070101
  6. NIFEDIPINE [Concomitant]
     Route: 048
     Dates: start: 20070101
  7. UNSPECIFIED MEDICATION [Concomitant]

REACTIONS (3)
  - INJECTION SITE PAIN [None]
  - MYALGIA [None]
  - NEURALGIA [None]
